FAERS Safety Report 6643021-0 (Version None)
Quarter: 2010Q1

REPORT INFORMATION
  Report Type: 
  Country: None (occurrence: None)
  Receive Date: 20100319
  Receipt Date: 20100311
  Transmission Date: 20100710
  Serious: Yes (Other)
  Sender: FDA-Public Use
  Company Number: B0639379A

PATIENT
  Sex: Male
  Weight: 53 kg

DRUGS (20)
  1. ALKERAN [Suspect]
     Indication: STEM CELL TRANSPLANT
     Dosage: 220MG PER DAY
     Route: 042
     Dates: start: 20091212, end: 20091212
  2. VEPESID [Suspect]
     Indication: STEM CELL TRANSPLANT
     Dosage: 300MG PER DAY
     Route: 042
     Dates: start: 20091208, end: 20091211
  3. CYMERIN [Suspect]
     Indication: STEM CELL TRANSPLANT
     Dosage: 370MG PER DAY
     Dates: start: 20091207, end: 20091207
  4. CYLOCIDE [Suspect]
     Indication: STEM CELL TRANSPLANT
     Dosage: 600MG PER DAY
     Route: 042
     Dates: start: 20091208, end: 20091211
  5. NEUTROGIN [Concomitant]
     Dates: start: 20091215, end: 20091226
  6. FUNGUARD [Concomitant]
     Dosage: 50MG PER DAY
     Dates: start: 20091207, end: 20091225
  7. OXYCONTIN [Concomitant]
     Dosage: 10MG PER DAY
     Route: 048
     Dates: start: 20091116, end: 20091218
  8. OXYCONTIN [Concomitant]
     Dosage: 10MG PER DAY
     Route: 048
     Dates: start: 20091231
  9. FENTANYL CITRATE [Concomitant]
     Route: 062
     Dates: start: 20091219, end: 20091221
  10. FENTANYL CITRATE [Concomitant]
     Dosage: 4.2MG PER DAY
     Route: 062
     Dates: start: 20091222, end: 20091227
  11. FENTANYL CITRATE [Concomitant]
     Dosage: 4.2MG PER DAY
     Route: 062
     Dates: start: 20091228, end: 20091230
  12. MAGMITT [Concomitant]
     Dosage: 990MG PER DAY
     Route: 048
     Dates: start: 20090626
  13. SELBEX [Concomitant]
     Dosage: 150MG PER DAY
     Route: 048
     Dates: start: 20091001
  14. OMEPRAL [Concomitant]
     Dosage: 20MG PER DAY
     Route: 048
     Dates: start: 20091029
  15. CRAVIT [Concomitant]
     Dosage: 500MG PER DAY
     Route: 048
     Dates: start: 20091207, end: 20091216
  16. ZOVIRAX [Concomitant]
     Dosage: 800MG PER DAY
     Route: 048
     Dates: start: 20091207, end: 20091227
  17. PRIMPERAN INJ [Concomitant]
     Dosage: 10MG PER DAY
     Dates: start: 20091214, end: 20091219
  18. MAXIPIME [Concomitant]
     Dosage: 4G PER DAY
     Dates: start: 20091215, end: 20091218
  19. TIENAM (IMIPENEME + CILASTATINE) [Concomitant]
     Dosage: 1G PER DAY
     Dates: start: 20091219, end: 20091228
  20. VANCOMYCIN [Concomitant]
     Dosage: 1.5G PER DAY
     Route: 048
     Dates: start: 20091219, end: 20091225

REACTIONS (1)
  - CARDIAC FAILURE [None]
